FAERS Safety Report 5148313-2 (Version None)
Quarter: 2006Q4

REPORT INFORMATION
  Report Type: 
  Country: None (occurrence: None)
  Receive Date: 20061106
  Receipt Date: 20061025
  Transmission Date: 20070319
  Serious: Yes (Other)
  Sender: FDA-Public Use
  Company Number: 2006132989

PATIENT
  Age: 35 Year
  Sex: Male
  Weight: 110 kg

DRUGS (1)
  1. FRAGMIN [Suspect]
     Indication: THROMBOSIS PROPHYLAXIS
     Dosage: 5000 I.U. (5000 I.U., 1 IN 24 HR), SUBCUTANEOUS
     Route: 058
     Dates: start: 20060918

REACTIONS (1)
  - DEEP VEIN THROMBOSIS [None]
